FAERS Safety Report 6682045-4 (Version None)
Quarter: 2010Q2

REPORT INFORMATION
  Report Type: 
  Country: None (occurrence: None)
  Receive Date: 20100414
  Receipt Date: 20100414
  Transmission Date: 20101027
  Serious: No
  Sender: FDA-Public Use
  Company Number: None

PATIENT
  Sex: Female
  Weight: 81.6475 kg

DRUGS (1)
  1. TOPAMAX [Suspect]
     Indication: MIGRAINE
     Dosage: 25 MG TWICE DAILY PO
     Route: 048
     Dates: start: 20040212, end: 20040218

REACTIONS (12)
  - ABNORMAL BEHAVIOUR [None]
  - CONSTIPATION [None]
  - DEPRESSION [None]
  - EMOTIONAL DISORDER [None]
  - IMPAIRED WORK ABILITY [None]
  - INSOMNIA [None]
  - MANIA [None]
  - MENTAL IMPAIRMENT [None]
  - NO THERAPEUTIC RESPONSE [None]
  - PYREXIA [None]
  - SOMNOLENCE [None]
  - THINKING ABNORMAL [None]
